FAERS Safety Report 9222965 (Version 2)
Quarter: 2013Q2

REPORT INFORMATION
  Report Type: Spontaneous
  Country: US (occurrence: US)
  Receive Date: 20130410
  Receipt Date: 20130508
  Transmission Date: 20140414
  Serious: Yes (Death, Life-Threatening)
  Sender: FDA-Public Use
  Company Number: US-ROCHE-1209928

PATIENT
  Age: 18 Year
  Sex: Female
  Weight: 64.5 kg

DRUGS (1)
  1. ACTILYSE [Suspect]
     Indication: PULMONARY EMBOLISM
     Dosage: INFUSION OVER 2 HOURS
     Route: 065

REACTIONS (4)
  - Exsanguination [Fatal]
  - Haemorrhage [Fatal]
  - Cardiac arrest [Unknown]
  - Pulseless electrical activity [Unknown]
